FAERS Safety Report 7389462-8 (Version None)
Quarter: 2011Q2

REPORT INFORMATION
  Report Type: 
  Country: None (occurrence: None)
  Receive Date: 20110401
  Receipt Date: 20110328
  Transmission Date: 20111010
  Serious: Yes (Life-Threatening, Hospitalization)
  Sender: FDA-Public Use
  Company Number: FR-BRISTOL-MYERS SQUIBB COMPANY-15642374

PATIENT
  Age: 83 Year
  Sex: Male

DRUGS (4)
  1. SPRYCEL [Suspect]
     Indication: CHRONIC MYELOID LEUKAEMIA
     Route: 048
     Dates: start: 20050101, end: 20100914
  2. GLEEVEC [Suspect]
     Indication: CHRONIC MYELOID LEUKAEMIA
     Dosage: 400MG: JAN2004 TO MAR2004  100MG: JUN2004 TO 27DEC2004 (TID)
     Dates: start: 20040101, end: 20041227
  3. SPIRIVA [Concomitant]
  4. TAMSULOSIN [Concomitant]
     Dosage: TAMSULOSIN SANDOZ LP
     Route: 048

REACTIONS (1)
  - BLADDER CANCER [None]
